FAERS Safety Report 5097700-X (Version None)
Quarter: 2006Q3

REPORT INFORMATION
  Report Type: 
  Country: None (occurrence: None)
  Receive Date: 20060901
  Receipt Date: 20060816
  Transmission Date: 20061208
  Serious: Yes (Hospitalization)
  Sender: FDA-Public Use
  Company Number: US200608003670

PATIENT
  Age: 15 Year
  Sex: Male

DRUGS (2)
  1. HUMATROPE [Suspect]
  2. HUMATROPEN (HUMATROPEN) PEN, REUSABLE [Concomitant]

REACTIONS (1)
  - MENTAL DISORDER [None]
